FAERS Safety Report 18096687 (Version 1)
Quarter: 2020Q3

REPORT INFORMATION
  Report Type: Spontaneous
  Country: GB (occurrence: GB)
  Receive Date: 20200730
  Receipt Date: 20200730
  Transmission Date: 20201103
  Serious: Yes (Life-Threatening, Hospitalization, Disabling, Other)
  Sender: FDA-Public Use
  Company Number: GB-009507513-2007GBR010022

PATIENT
  Age: 70 Year
  Sex: Male
  Weight: 102.05 kg

DRUGS (6)
  1. APIXABAN [Concomitant]
     Active Substance: APIXABAN
  2. FINASTERIDE. [Suspect]
     Active Substance: FINASTERIDE
     Indication: PROSTATIC DISORDER
     Route: 048
     Dates: start: 20200622, end: 20200706
  3. GLICLAZIDE [Concomitant]
     Active Substance: GLICLAZIDE
  4. ALLOPURINOL. [Concomitant]
     Active Substance: ALLOPURINOL
  5. ATORVASTATIN CALCIUM. [Concomitant]
     Active Substance: ATORVASTATIN CALCIUM
  6. METFORMIN [Concomitant]
     Active Substance: METFORMIN HYDROCHLORIDE

REACTIONS (2)
  - Urine flow decreased [Not Recovered/Not Resolved]
  - Urinary retention [Unknown]

NARRATIVE: CASE EVENT DATE: 20200622
